FAERS Safety Report 22308954 (Version 3)
Quarter: 2023Q4

REPORT INFORMATION
  Report Type: Report from Study
  Country: AR (occurrence: AR)
  Receive Date: 20230511
  Receipt Date: 20231005
  Transmission Date: 20240110
  Serious: Yes (Other)
  Sender: FDA-Public Use
  Company Number: AR-002147023-NVSC2023AR105327

PATIENT
  Sex: Male

DRUGS (2)
  1. COSENTYX [Suspect]
     Active Substance: SECUKINUMAB
     Indication: Psoriasis
     Dosage: 300 MG, UNKNOWN
     Route: 065
     Dates: start: 20190416
  2. COSENTYX [Suspect]
     Active Substance: SECUKINUMAB
     Dosage: 300 MG, QMO
     Route: 065
     Dates: start: 201904

REACTIONS (4)
  - Blindness [Unknown]
  - Parkinson^s disease [Unknown]
  - Arthralgia [Unknown]
  - Neck pain [Unknown]
